FAERS Safety Report 7576349-0 (Version None)
Quarter: 2011Q2

REPORT INFORMATION
  Report Type: 
  Country: None (occurrence: None)
  Receive Date: 20110628
  Receipt Date: 20081016
  Transmission Date: 20111010
  Serious: Yes (Death, Hospitalization, Other)
  Sender: FDA-Public Use
  Company Number: US-BAYER-200836221NA

PATIENT
  Age: 77 Year
  Sex: Male
  Weight: 90.249 kg

DRUGS (19)
  1. DOPAMINE HCL [Concomitant]
     Dosage: 7 MCG/KG/MINUTE
     Route: 042
     Dates: start: 20060330
  2. FOSAMAX [Concomitant]
     Dosage: 70 MG, OW
     Route: 048
     Dates: start: 20050316
  3. HEPARIN [Concomitant]
     Dosage: 3 MG/KG, UNK
     Route: 042
     Dates: start: 20060329, end: 20060330
  4. FENTANYL CITRATE [Concomitant]
     Dosage: 0.100 MG/ML, UNK
     Route: 042
     Dates: start: 20060329, end: 20060330
  5. NITROGLYCERIN [Concomitant]
     Dosage: 50 MG, UNK
     Route: 042
     Dates: start: 20060329
  6. TRASYLOL [Suspect]
     Indication: CARDIAC OPERATION
     Route: 042
     Dates: start: 20060329
  7. ISOSORBIDE MONONITRATE [Concomitant]
     Dosage: 60 MG, ONCE
     Route: 048
     Dates: start: 20050415
  8. DOBUTAMINE HCL [Concomitant]
     Dosage: 7 MCG/KG/MINUTE
     Route: 042
     Dates: start: 20060330
  9. PAVULON [Concomitant]
     Dosage: 5 MG, UNK
     Route: 042
     Dates: start: 20060329
  10. GLUCOPHAGE [Concomitant]
     Dosage: 500 MG, BID
     Route: 048
     Dates: start: 20050316
  11. TOPROL-XL [Concomitant]
     Dosage: 100 MG, BID
     Route: 048
     Dates: start: 20030401
  12. PLAVIX [Concomitant]
     Dosage: 75 MG, QID
     Route: 048
     Dates: start: 20040401, end: 20060326
  13. MIDAZOLAM HCL [Concomitant]
     Dosage: 2 MG/ML, UNK
     Route: 042
     Dates: start: 20060330
  14. COUMADIN [Concomitant]
     Dosage: 2 MG, UNK
     Route: 048
  15. METFORMIN HCL [Concomitant]
     Dosage: 500 MG, BID
     Route: 048
  16. VASOPRESSIN [Concomitant]
     Dosage: .1 UNITS/MINUTE
     Route: 042
     Dates: start: 20060330
  17. TRASYLOL [Suspect]
     Indication: CORONARY ARTERY BYPASS
  18. INSULIN [Concomitant]
     Dosage: 250/250
     Dates: start: 20060329, end: 20060330
  19. RED BLOOD CELLS [Concomitant]
     Dosage: 2 U, UNK
     Dates: start: 20060329

REACTIONS (4)
  - CARDIAC FAILURE CONGESTIVE [None]
  - INJURY [None]
  - DEATH [None]
  - RENAL FAILURE [None]
